FAERS Safety Report 7042670-8 (Version None)
Quarter: 2010Q4

REPORT INFORMATION
  Report Type: 
  Country: None (occurrence: None)
  Receive Date: 20101013
  Receipt Date: 20100304
  Transmission Date: 20110411
  Serious: No
  Sender: FDA-Public Use
  Company Number: US-ASTRAZENECA-2010SE09498

PATIENT
  Age: 8 Year
  Sex: Male
  Weight: 25.4 kg

DRUGS (5)
  1. SYMBICORT [Suspect]
     Indication: ASTHMA
     Dosage: 160/4.5 MCG, TWO PUFFS BID
     Route: 055
  2. SYMBICORT [Suspect]
     Dosage: 160/4.5 MCG, TWO PUFFS BID
     Route: 055
     Dates: start: 20100201
  3. SYMBICORT [Suspect]
     Dosage: 80/4.5 MCG, TWO PUFFS BID
     Route: 055
     Dates: start: 20100301
  4. PULMICORT RESPULES [Suspect]
     Indication: ASTHMA
     Route: 055
     Dates: start: 20100101
  5. XOPENEX [Suspect]

REACTIONS (5)
  - FATIGUE [None]
  - MOOD ALTERED [None]
  - NASOPHARYNGITIS [None]
  - PAIN [None]
  - TENSION [None]
